FAERS Safety Report 13518987 (Version 1)
Quarter: 2017Q2

REPORT INFORMATION
  Report Type: Spontaneous
  Country: US (occurrence: US)
  Receive Date: 20170505
  Receipt Date: 20170505
  Transmission Date: 20170830
  Serious: No
  Sender: FDA-Public Use
  Company Number: US-PERRIGO-16US014780

PATIENT
  Age: 54 Year
  Sex: Female
  Weight: 72.56 kg

DRUGS (1)
  1. NAPROXEN SODIUM-PSEUDOEPHEDRINE HYDROCHLORIDE [Suspect]
     Active Substance: NAPROXEN SODIUM\PSEUDOEPHEDRINE HYDROCHLORIDE
     Indication: SINUS CONGESTION
     Dosage: 1 TABLET, PRN
     Route: 048

REACTIONS (1)
  - Nervousness [Recovered/Resolved]

NARRATIVE: CASE EVENT DATE: 201603
